FAERS Safety Report 5333908-3 (Version None)
Quarter: 2007Q2

REPORT INFORMATION
  Report Type: 
  Country: None (occurrence: None)
  Receive Date: 20070524
  Receipt Date: 20070516
  Transmission Date: 20071010
  Serious: Yes (Hospitalization, Other)
  Sender: FDA-Public Use
  Company Number: US-ELI_LILLY_AND_COMPANY-US200705000700

PATIENT
  Age: 70 Year
  Sex: Female
  Weight: 55.782 kg

DRUGS (18)
  1. FORTEO [Suspect]
     Indication: OSTEOPOROSIS
     Dosage: 20 UG, DAILY (1/D)
     Dates: start: 20060501
  2. HALDOL /SCH/ [Concomitant]
     Dates: start: 20070101
  3. RISPERDAL [Concomitant]
     Dates: start: 20070101
  4. LIBRAX [Concomitant]
     Indication: PAIN
  5. SPIRIVA [Concomitant]
  6. ALBUTEROL [Concomitant]
  7. POTASSIUM CHLORIDE [Concomitant]
  8. LASIX [Concomitant]
  9. CELEBREX [Concomitant]
  10. ASCORBIC ACID [Concomitant]
  11. NEXIUM [Concomitant]
  12. PARAFON FORTE [Concomitant]
  13. NORTRIPTYLINE HCL [Concomitant]
  14. PREMARIN [Concomitant]
  15. NITROTAB [Concomitant]
  16. KLONOPIN [Concomitant]
  17. PRENATAL VITAMINS                  /01549301/ [Concomitant]
  18. KEPPRA [Concomitant]

REACTIONS (10)
  - BALANCE DISORDER [None]
  - BLOOD ELECTROLYTES DECREASED [None]
  - CONVULSION [None]
  - DEMENTIA [None]
  - DRUG HYPERSENSITIVITY [None]
  - FALL [None]
  - FEELING HOT [None]
  - INJECTION SITE COLDNESS [None]
  - MALAISE [None]
  - SOMNOLENCE [None]
